FAERS Safety Report 14753141 (Version 1)
Quarter: 2018Q2

REPORT INFORMATION
  Report Type: Other
  Country: None (occurrence: US)
  Receive Date: 20180412
  Receipt Date: 20180412
  Transmission Date: 20180711
  Serious: Yes (Other)
  Sender: FDA-Public Use
  Company Number: US-GUTHY-RENKER, LLC-2045681

PATIENT
  Age: 65 Year
  Sex: Female

DRUGS (3)
  1. MEANINGFUL BEAUTY WELLNESS 2 PILL SUPPLEMENT [Suspect]
     Active Substance: MINERALS\VITAMINS
     Indication: NUTRITIONAL SUPPLEMENTATION
     Route: 048
     Dates: start: 20180302, end: 20180329
  2. ATENOLOL. [Concomitant]
     Active Substance: ATENOLOL
  3. LIQUID VITAMINS UNDISCLOSED USED IN THE PAST PRIOR TO M [Concomitant]
     Active Substance: VITAMINS

REACTIONS (1)
  - Renal failure [Not Recovered/Not Resolved]

NARRATIVE: CASE EVENT DATE: 20180326
